FAERS Safety Report 20178641 (Version 1)
Quarter: 2021Q4

REPORT INFORMATION
  Report Type: Report from Study
  Country: JP (occurrence: JP)
  Receive Date: 20211214
  Receipt Date: 20211214
  Transmission Date: 20220303
  Serious: Yes (Other)
  Sender: FDA-Public Use
  Company Number: JP-SUN PHARMACEUTICAL INDUSTRIES LTD-2021RR-320107

PATIENT
  Age: 41 Year
  Sex: Male

DRUGS (2)
  1. TEMOZOLOMIDE [Suspect]
     Active Substance: TEMOZOLOMIDE
     Indication: Fibroma
     Dosage: 150 MILLIGRAM/SQ. METER, ON DAYS 1-7 AND 15-21
     Route: 048
  2. BEVACIZUMAB [Suspect]
     Active Substance: BEVACIZUMAB
     Indication: Fibroma
     Dosage: 5 MILLIGRAM/KILOGRAM, ON DAY 8 AND DAY 22 ON A 28-DAY CYCLE
     Route: 042

REACTIONS (2)
  - Haemolytic anaemia [Recovered/Resolved]
  - Toxicity to various agents [Unknown]
